FAERS Safety Report 4712675-8 (Version None)
Quarter: 2005Q3

REPORT INFORMATION
  Report Type: 
  Country: None (occurrence: None)
  Receive Date: 20050706
  Receipt Date: 20050407
  Transmission Date: 20060218
  Serious: Yes (Hospitalization)
  Sender: FDA-Public Use
  Company Number: US-2005-005224

PATIENT
  Age: 77 Year
  Sex: Male

DRUGS (1)
  1. CAMPATH [Suspect]
     Indication: CHRONIC LYMPHOCYTIC LEUKAEMIA
     Dosage: 3 MG, QOD, RECEIVED 29 DOSES
     Dates: start: 20050101, end: 20050301

REACTIONS (1)
  - APLASTIC ANAEMIA [None]
